FAERS Safety Report 8256770-8 (Version None)
Quarter: 2012Q2

REPORT INFORMATION
  Report Type: 
  Country: None (occurrence: None)
  Receive Date: 20120403
  Receipt Date: 20120323
  Transmission Date: 20120825
  Serious: Yes (Hospitalization, Other)
  Sender: FDA-Public Use
  Company Number: CN-BRISTOL-MYERS SQUIBB COMPANY-16473886

PATIENT
  Age: 76 Year
  Sex: Male
  Weight: 70 kg

DRUGS (5)
  1. TAMSULOSIN HCL [Concomitant]
     Indication: PROSTATIC DISORDER
     Dosage: CAPS
     Route: 065
  2. PROSCAR [Concomitant]
     Indication: PROSTATIC DISORDER
     Dosage: TABS
     Route: 065
  3. TELMISARTAN [Concomitant]
     Indication: HYPERTENSION
     Route: 048
     Dates: start: 20100501, end: 20100501
  4. IRBESARTAN [Suspect]
     Indication: HYPERTENSION
     Dosage: 1DF= 1 TAB
     Route: 048
     Dates: start: 20110501
  5. IRBESARTAN AND HYDROCHLOROTHIAZIDE [Suspect]
     Indication: HYPERTENSION
     Dosage: 1DF= 1 TAB
     Route: 048
     Dates: start: 20100501, end: 20110501

REACTIONS (2)
  - SWELLING FACE [None]
  - BLOOD CREATINE PHOSPHOKINASE INCREASED [None]
